FAERS Safety Report 18198091 (Version 1)
Quarter: 2020Q3

REPORT INFORMATION
  Report Type: Report from Study
  Country: None (occurrence: CO)
  Receive Date: 20200826
  Receipt Date: 20200826
  Transmission Date: 20201103
  Serious: Yes (Other)
  Sender: FDA-Public Use
  Company Number: CO-ABBVIE-20K-036-3538388-00

PATIENT
  Age: 23 Year
  Sex: Female

DRUGS (2)
  1. LEUPROLIDE ACETATE DEPOT [Suspect]
     Active Substance: LEUPROLIDE ACETATE
     Indication: LABORATORY TEST
  2. LEUPROLIDE ACETATE DEPOT [Suspect]
     Active Substance: LEUPROLIDE ACETATE
     Indication: PRECOCIOUS PUBERTY
     Dosage: 11,25 MG
     Route: 065
     Dates: start: 2007, end: 2010

REACTIONS (18)
  - Vitiligo [Unknown]
  - Keloid scar [Unknown]
  - Cellulitis [Unknown]
  - Skin disorder [Unknown]
  - Headache [Unknown]
  - Body height below normal [Unknown]
  - Dysmenorrhoea [Unknown]
  - Depression [Unknown]
  - Muscle fatigue [Unknown]
  - Myalgia [Unknown]
  - Premenstrual syndrome [Unknown]
  - Scoliosis [Unknown]
  - Lordosis [Unknown]
  - Arthralgia [Unknown]
  - Fatigue [Unknown]
  - Visual impairment [Unknown]
  - Temperature regulation disorder [Unknown]
  - Hyperhidrosis [Unknown]
